FAERS Safety Report 16944698 (Version 1)
Quarter: 2019Q4

REPORT INFORMATION
  Report Type: Spontaneous
  Country: CN (occurrence: CN)
  Receive Date: 20191022
  Receipt Date: 20191022
  Transmission Date: 20200122
  Serious: Yes (Other)
  Sender: FDA-Public Use
  Company Number: CN-ELI_LILLY_AND_COMPANY-CN201910006719

PATIENT
  Age: 76 Year
  Weight: 83 kg

DRUGS (4)
  1. HUMALOG [Suspect]
     Active Substance: INSULIN LISPRO
     Dosage: 18 U, DAILY AT NOON
     Route: 058
     Dates: start: 1996
  2. HUMALOG [Suspect]
     Active Substance: INSULIN LISPRO
     Dosage: 18 U, DAILY BEFORE SLEEP
     Route: 058
     Dates: start: 1996
  3. HUMALOG [Suspect]
     Active Substance: INSULIN LISPRO
     Indication: DIABETES MELLITUS
     Dosage: 18 U, EACH MORNING
     Route: 058
     Dates: start: 1996
  4. HUMALOG [Suspect]
     Active Substance: INSULIN LISPRO
     Dosage: 16 U, DAILY AT NIGHT
     Route: 058
     Dates: start: 1996

REACTIONS (3)
  - Accidental underdose [Unknown]
  - Vascular injury [Unknown]
  - Retinal haemorrhage [Unknown]
